FAERS Safety Report 7345484-4 (Version None)
Quarter: 2011Q1

REPORT INFORMATION
  Report Type: 
  Country: None (occurrence: None)
  Receive Date: 20110310
  Receipt Date: 20110307
  Transmission Date: 20110831
  Serious: Yes (Other)
  Sender: FDA-Public Use
  Company Number: ES-ABBOTT-11P-144-0709420-00

PATIENT
  Age: 72 Year
  Sex: Male

DRUGS (2)
  1. HUMIRA [Suspect]
     Indication: CROHN'S DISEASE
  2. MESALAZINE [Concomitant]
     Indication: CROHN'S DISEASE

REACTIONS (3)
  - CEREBROVASCULAR ACCIDENT [None]
  - APHASIA [None]
  - MOBILITY DECREASED [None]
